FAERS Safety Report 8093340-9 (Version None)
Quarter: 2012Q1

REPORT INFORMATION
  Report Type: 
  Country: None (occurrence: None)
  Receive Date: 20120128
  Receipt Date: 20110921
  Transmission Date: 20120608
  Serious: No
  Sender: FDA-Public Use
  Company Number: US-ABBOTT-11P-163-0850952-00

PATIENT
  Sex: Female
  Weight: 113.5 kg

DRUGS (7)
  1. HUMIRA [Suspect]
     Indication: CROHN'S DISEASE
     Dates: start: 20091026, end: 20110830
  2. CALCIUM [Concomitant]
     Indication: MINERAL SUPPLEMENTATION
  3. FISH OIL [Concomitant]
     Indication: SUPPLEMENTATION THERAPY
  4. MULTI-VITAMIN [Concomitant]
     Indication: VITAMIN SUPPLEMENTATION
  5. UNKNOWN PROBIOTIC MEDICATION [Concomitant]
     Indication: CROHN'S DISEASE
  6. COLAZAL [Concomitant]
     Indication: CROHN'S DISEASE
  7. UNKNOWN BLOOD PRESSURE MEDICATION [Concomitant]
     Indication: HYPERTENSION

REACTIONS (5)
  - FURUNCLE [None]
  - SCROTAL ABSCESS [None]
  - PAIN IN EXTREMITY [None]
  - LOCALISED INFECTION [None]
  - INFECTION [None]
